FAERS Safety Report 12145798 (Version 1)
Quarter: 2016Q1

REPORT INFORMATION
  Report Type: Spontaneous
  Country: US (occurrence: US)
  Receive Date: 20160304
  Receipt Date: 20160304
  Transmission Date: 20160526
  Serious: Yes (Other)
  Sender: FDA-Public Use
  Company Number: US-NOVOPROD-480975

PATIENT
  Sex: Male

DRUGS (2)
  1. LEVEMIR [Suspect]
     Active Substance: INSULIN DETEMIR
     Indication: PRODUCT USED FOR UNKNOWN INDICATION
     Route: 058
  2. NOVOLOG [Suspect]
     Active Substance: INSULIN ASPART
     Indication: PRODUCT USED FOR UNKNOWN INDICATION
     Route: 058

REACTIONS (8)
  - Weight decreased [Unknown]
  - Dyspnoea [Unknown]
  - Insomnia [Unknown]
  - Nephrolithiasis [Unknown]
  - Fluid retention [Unknown]
  - Blood glucose increased [Unknown]
  - Angina pectoris [Unknown]
  - Pollakiuria [Unknown]
